FAERS Safety Report 14525415 (Version 1)
Quarter: 2020Q3

REPORT INFORMATION
  Report Type: Report from Study
  Country: US (occurrence: US)
  Receive Date: 20180213
  Receipt Date: 20180213
  Transmission Date: 20201104
  Serious: Yes (Hospitalization)
  Sender: FDA-Public Use
  Company Number: US-JNJFOC-20170105595

PATIENT
  Age: 79 Year
  Sex: Female

DRUGS (33)
  1. MEDI4736 [Suspect]
     Active Substance: DURVALUMAB
     Indication: LYMPHOMA
     Route: 042
     Dates: start: 20160920, end: 20161213
  2. AMLODIPINE [Concomitant]
     Active Substance: AMLODIPINE BESYLATE
     Dates: start: 20160805
  3. CHOLECALCIFEROL [Concomitant]
     Active Substance: CHOLECALCIFEROL
     Dosage: 2000 UNIT, QD
  4. GABAPENTIN. [Concomitant]
     Active Substance: GABAPENTIN
     Dates: start: 20160606
  5. OMEPRAZOLE. [Concomitant]
     Active Substance: OMEPRAZOLE
     Dates: start: 20160921
  6. POTASSIUM CHLORIDE. [Concomitant]
     Active Substance: POTASSIUM CHLORIDE
     Dates: start: 20161213
  7. SERTRALINE [Concomitant]
     Active Substance: SERTRALINE HYDROCHLORIDE
     Dates: start: 20160909
  8. INSULIN DETEMIR [Concomitant]
     Active Substance: INSULIN DETEMIR
     Dosage: 34 UNIT, QD
     Dates: start: 20160921
  9. PREDNISONE. [Concomitant]
     Active Substance: PREDNISONE
     Dates: start: 20161013
  10. ISOSORBIDE MONONITRATE. [Concomitant]
     Active Substance: ISOSORBIDE MONONITRATE
     Dates: start: 20160908
  11. MIRTAZAPINE. [Concomitant]
     Active Substance: MIRTAZAPINE
     Dates: start: 20160908
  12. RIVAROXABAN [Concomitant]
     Active Substance: RIVAROXABAN
     Dates: start: 20161117
  13. CARBIDOPA?LEVODOPA?B [Concomitant]
     Active Substance: CARBIDOPA\LEVODOPA
     Dosage: 25?100 MG (2 TAB QD)
     Dates: start: 20160316
  14. LOPERAMIDE [Concomitant]
     Active Substance: LOPERAMIDE
  15. IBRUTINIB [Suspect]
     Active Substance: IBRUTINIB
     Indication: LYMPHOMA
     Dosage: 560 MG, QD
     Route: 048
     Dates: start: 20160914, end: 20161213
  16. ACETAMINOPHEN. [Concomitant]
     Active Substance: ACETAMINOPHEN
  17. DIPHENHYDRAMINE. [Concomitant]
     Active Substance: DIPHENHYDRAMINE
     Dates: start: 20161013
  18. HYDROCHLOROTHIAZIDE. [Concomitant]
     Active Substance: HYDROCHLOROTHIAZIDE
     Dates: start: 20160908
  19. METOPROLOL SUCCINATE. [Concomitant]
     Active Substance: METOPROLOL SUCCINATE
     Dosage: 50 MG, BID
  20. METOPROLOL SUCCINATE. [Concomitant]
     Active Substance: METOPROLOL SUCCINATE
  21. NITROGLYCERIN. [Concomitant]
     Active Substance: NITROGLYCERIN
     Dates: start: 20150812
  22. TRAMADOL. [Concomitant]
     Active Substance: TRAMADOL
     Dates: start: 20160805
  23. MEDI4736 [Suspect]
     Active Substance: DURVALUMAB
     Indication: LYMPHOMA
     Dosage: 10 MG/KG, QD
     Route: 042
     Dates: start: 20161231
  24. FUROSEMIDE. [Concomitant]
     Active Substance: FUROSEMIDE
     Dates: start: 20161112
  25. METFORMIN [Concomitant]
     Active Substance: METFORMIN HYDROCHLORIDE
     Dates: start: 20150915
  26. RANITIDINE. [Concomitant]
     Active Substance: RANITIDINE
     Dates: start: 20161013
  27. MULTIVITAMINS PLUS IRON [Concomitant]
     Active Substance: IRON\VITAMINS
  28. ASPIRIN. [Concomitant]
     Active Substance: ASPIRIN
  29. PROPYLENE GLYCOL [Concomitant]
     Active Substance: PROPYLENE GLYCOL
     Dosage: 1 GTT, QD (BOTH EYES)
  30. SIMVASTATIN. [Concomitant]
     Active Substance: SIMVASTATIN
     Dates: start: 20160106
  31. IBRUTINIB [Suspect]
     Active Substance: IBRUTINIB
     Indication: LYMPHOMA
     Dosage: 560 MG, QD
     Route: 048
     Dates: start: 20161231
  32. MAGNESIUM OXIDE. [Concomitant]
     Active Substance: MAGNESIUM OXIDE
     Dates: start: 20161227
  33. METOPROLOL SUCCINATE. [Concomitant]
     Active Substance: METOPROLOL SUCCINATE
     Dates: start: 20161120

REACTIONS (2)
  - Electrolyte imbalance [Recovered/Resolved]
  - Atrial fibrillation [Recovered/Resolved]

NARRATIVE: CASE EVENT DATE: 20161227
